FAERS Safety Report 4914597-6 (Version None)
Quarter: 2006Q1

REPORT INFORMATION
  Report Type: 
  Country: None (occurrence: None)
  Receive Date: 20060216
  Receipt Date: 20051011
  Transmission Date: 20060701
  Serious: Yes (Hospitalization)
  Sender: FDA-Public Use
  Company Number: US-MERCK-0510USA06913

PATIENT
  Age: 66 Year
  Sex: Female
  Weight: 68 kg

DRUGS (14)
  1. VIOXX [Suspect]
     Indication: ARTHRITIS
     Route: 048
     Dates: start: 20000502, end: 20040701
  2. VIOXX [Suspect]
     Indication: KNEE OPERATION
     Route: 048
     Dates: start: 20000502, end: 20040701
  3. AMITRIPTYLIN [Concomitant]
     Route: 065
  4. TEMAZE [Concomitant]
     Route: 065
  5. METOPROLOL [Concomitant]
     Route: 065
  6. LISINOPRIL [Concomitant]
     Route: 065
  7. PLAVIX [Concomitant]
     Route: 065
  8. LIPITOR [Concomitant]
     Route: 065
  9. ASPIRIN [Concomitant]
     Route: 065
  10. PROTONIX [Concomitant]
     Route: 065
  11. CEPHALEXIN [Concomitant]
     Route: 065
  12. HYDROCODONE BITARTRATE + ACETAMINOPHEN [Concomitant]
     Route: 065
  13. NAPROXEN [Concomitant]
     Route: 065
  14. TYLEX (ACETAMINOPHEN (+) CODEINE PHOSPHATE) [Concomitant]
     Route: 065

REACTIONS (6)
  - ANGINA UNSTABLE [None]
  - CARDIAC DISORDER [None]
  - CHEST PAIN [None]
  - CORONARY ARTERY DISEASE [None]
  - OESOPHAGEAL DILATATION [None]
  - ULCER [None]
